FAERS Safety Report 24407388 (Version 2)
Quarter: 2024Q4

REPORT INFORMATION
  Report Type: Spontaneous
  Country: US (occurrence: US)
  Receive Date: 20241007
  Receipt Date: 20241107
  Transmission Date: 20250115
  Serious: No
  Sender: PFIZER
  Company Number: US-PFIZER INC-PV202400038589

PATIENT
  Age: 54 Year
  Sex: Male
  Weight: 62.585 kg

DRUGS (26)
  1. ZIRABEV [Suspect]
     Active Substance: BEVACIZUMAB-BVZR
     Indication: Colon cancer stage III
     Dosage: 300 MG(5 MG/KG)(30 MINUTES; PIGGYBACK ONCE), EVERY 14 DAYS
     Route: 042
     Dates: start: 20240129, end: 20240129
  2. ZIRABEV [Suspect]
     Active Substance: BEVACIZUMAB-BVZR
     Dosage: 300 MG(5 MG/KG)(30 MINUTES; PIGGYBACK ONCE), EVERY 14 DAYS
     Route: 042
     Dates: start: 20240212, end: 20240212
  3. FLUOROURACIL [Concomitant]
     Active Substance: FLUOROURACIL
     Indication: Colon cancer stage III
     Dosage: 0.25 MG
     Route: 040
     Dates: start: 20240129, end: 20240129
  4. FLUOROURACIL [Concomitant]
     Active Substance: FLUOROURACIL
     Dosage: 680 MG
     Route: 040
     Dates: start: 20240129, end: 20240129
  5. FLUOROURACIL [Concomitant]
     Active Substance: FLUOROURACIL
     Dosage: 4080 MG(2400 MG/M2 CIV OVER 48 HOURS)
     Route: 040
     Dates: start: 20240129
  6. FLUOROURACIL [Concomitant]
     Active Substance: FLUOROURACIL
     Dosage: 680 MG
     Route: 040
     Dates: start: 20240212, end: 20240212
  7. FLUOROURACIL [Concomitant]
     Active Substance: FLUOROURACIL
     Dosage: 4080 MG(2400 MG/M2 CIV OVER 48 HOURS)
     Route: 040
     Dates: start: 20240212
  8. LEUCOVORIN [Concomitant]
     Active Substance: LEUCOVORIN\LEUCOVORIN CALCIUM
     Indication: Colon cancer stage III
     Dosage: 680 MG; PIGGYBACK ONCE
     Route: 042
     Dates: start: 20240129, end: 20240129
  9. LEUCOVORIN [Concomitant]
     Active Substance: LEUCOVORIN\LEUCOVORIN CALCIUM
     Dosage: 680 MG; PIGGYBACK ONCE
     Route: 042
     Dates: start: 20240212, end: 20240212
  10. OXALIPLATIN [Concomitant]
     Active Substance: OXALIPLATIN
     Indication: Colon cancer stage III
     Dosage: 145 MG; 2 HOURS; PIGGYBACK ONCE
     Route: 042
     Dates: start: 20240129, end: 20240129
  11. OXALIPLATIN [Concomitant]
     Active Substance: OXALIPLATIN
     Dosage: 145 MG; 2 HOURS; PIGGYBACK ONCE
     Route: 042
     Dates: start: 20240212, end: 20240212
  12. SODIUM CHLORIDE [Concomitant]
     Active Substance: SODIUM CHLORIDE
     Dosage: 50 MG; 20 MINUTES; PIGGYBACK ONCE
     Route: 042
     Dates: start: 20240129, end: 20240129
  13. SODIUM CHLORIDE [Concomitant]
     Active Substance: SODIUM CHLORIDE
     Dosage: 100 ML;30 MINUTES; PIGGYBACK ONCE
     Route: 042
     Dates: start: 20240129, end: 20240129
  14. SODIUM CHLORIDE [Concomitant]
     Active Substance: SODIUM CHLORIDE
     Dosage: 92 ML;2400 MG/M2 CIV OVER 48 HOURS
     Route: 040
     Dates: start: 20240129
  15. SODIUM CHLORIDE [Concomitant]
     Active Substance: SODIUM CHLORIDE
     Dosage: 50 MG; 20 MINUTES; PIGGYBACK ONCE
     Route: 042
     Dates: start: 20240212, end: 20240212
  16. SODIUM CHLORIDE [Concomitant]
     Active Substance: SODIUM CHLORIDE
     Dosage: 100 ML;30 MINUTES; PIGGYBACK ONCE
     Route: 042
     Dates: start: 20240212, end: 20240212
  17. SODIUM CHLORIDE [Concomitant]
     Active Substance: SODIUM CHLORIDE
     Dosage: 92 ML;2400 MG/M2 CIV OVER 48 HOURS
     Route: 040
     Dates: start: 20240212
  18. DEXTROSE [Concomitant]
     Active Substance: DEXTROSE MONOHYDRATE
     Dosage: 279 ML; 2 HOURS; PIGGYBACK ONCE
     Route: 042
     Dates: start: 20240129, end: 20240129
  19. DEXTROSE [Concomitant]
     Active Substance: DEXTROSE MONOHYDRATE
     Dosage: 284 ML; PIGGYBACK ONCE
     Route: 042
     Dates: start: 20240129, end: 20240129
  20. DEXTROSE [Concomitant]
     Active Substance: DEXTROSE MONOHYDRATE
     Dosage: 279 ML; 2 HOURS; PIGGYBACK ONCE
     Route: 042
     Dates: start: 20240212, end: 20240212
  21. DEXTROSE [Concomitant]
     Active Substance: DEXTROSE MONOHYDRATE
     Dosage: 284 ML; PIGGYBACK ONCE
     Route: 042
     Dates: start: 20240212, end: 20240212
  22. DEXAMETHASONE [Concomitant]
     Active Substance: DEXAMETHASONE
     Dosage: 10 MG; 20 MINUTES; PIGGYBACK ONCE
     Route: 042
     Dates: start: 20240129, end: 20240129
  23. DEXAMETHASONE [Concomitant]
     Active Substance: DEXAMETHASONE
     Dosage: 10 MG; 20 MINUTES; PIGGYBACK ONCE
     Route: 042
     Dates: start: 20240212, end: 20240212
  24. FOSAPREPITANT [Concomitant]
     Active Substance: FOSAPREPITANT
     Dosage: 150 MG; PIGGYBACK ONCE
     Route: 042
     Dates: start: 20240129, end: 20240129
  25. FOSAPREPITANT [Concomitant]
     Active Substance: FOSAPREPITANT
     Dosage: 150 MG; PIGGYBACK ONCE
     Route: 042
     Dates: start: 20240212, end: 20240212
  26. PALONOSETRON [Concomitant]
     Active Substance: PALONOSETRON
     Indication: Premedication
     Dosage: 0.25 MG
     Route: 040
     Dates: start: 20240212, end: 20240212

REACTIONS (6)
  - Neoplasm progression [Unknown]
  - Blood urea increased [Unknown]
  - Blood urea nitrogen/creatinine ratio increased [Unknown]
  - Off label use [Unknown]
  - Off label use [Unknown]
  - Intentional product use issue [Unknown]

NARRATIVE: CASE EVENT DATE: 20240129
